FAERS Safety Report 25127615 (Version 1)
Quarter: 2025Q1

REPORT INFORMATION
  Report Type: Spontaneous
  Country: AU (occurrence: AU)
  Receive Date: 20250327
  Receipt Date: 20250327
  Transmission Date: 20250409
  Serious: No
  Sender: ALKEM
  Company Number: AU-ALKEM LABORATORIES LIMITED-AU-ALKEM-2024-24711

PATIENT
  Age: 54 Year
  Sex: Male

DRUGS (7)
  1. DULOXETINE HYDROCHLORIDE [Suspect]
     Active Substance: DULOXETINE HYDROCHLORIDE
     Indication: Product used for unknown indication
     Route: 065
  2. QUETIAPINE FUMARATE [Suspect]
     Active Substance: QUETIAPINE FUMARATE
     Indication: Product used for unknown indication
     Route: 065
  3. VENLAFAXINE [Suspect]
     Active Substance: VENLAFAXINE HYDROCHLORIDE
     Indication: Product used for unknown indication
     Route: 065
  4. ACETAMINOPHEN [Suspect]
     Active Substance: ACETAMINOPHEN
     Indication: Product used for unknown indication
     Route: 065
  5. ALPRAZOLAM [Suspect]
     Active Substance: ALPRAZOLAM
     Indication: Product used for unknown indication
     Route: 065
  6. ALCOHOL [Suspect]
     Active Substance: ALCOHOL
     Indication: Product used for unknown indication
     Route: 065
  7. FLUVOXAMINE MALEATE [Suspect]
     Active Substance: FLUVOXAMINE MALEATE
     Indication: Product used for unknown indication
     Route: 065

REACTIONS (1)
  - Toxicity to various agents [Unknown]
